FAERS Safety Report 8960209 (Version 3)
Quarter: 2013Q2

REPORT INFORMATION
  Report Type: Report from Study
  Country: CA (occurrence: CA)
  Receive Date: 20121211
  Receipt Date: 20130502
  Transmission Date: 20140414
  Serious: Yes (Other)
  Sender: FDA-Public Use
  Company Number: CA-PFIZER INC-2012300591

PATIENT
  Age: 4 Year
  Sex: Male
  Weight: 22.7 kg

DRUGS (12)
  1. VIAGRA [Suspect]
     Indication: PULMONARY HYPERTENSION
     Dosage: 12.5 MG, 4X/DAY
     Route: 050
     Dates: start: 20121025, end: 20121127
  2. OMEPRAZOLE [Concomitant]
     Dosage: 15 MG, 2X/DAY
     Route: 048
  3. CALCIUM CARBONATE [Concomitant]
     Dosage: 250 MG, 2X/DAY
  4. ASA [Concomitant]
     Dosage: 40 MG, 1X/DAY
     Route: 048
  5. ENALAPRIL [Concomitant]
     Dosage: 4 MG, 2X/DAY
     Route: 048
  6. DOMPERIDONE [Concomitant]
     Dosage: 10 MG, 2X/DAY
     Route: 048
  7. LASIX [Concomitant]
     Dosage: 15 MG, 3X/DAY
     Route: 048
  8. CARVEDILOL [Concomitant]
     Dosage: 7 MG, 2X/DAY
     Route: 048
  9. POTASSIUM CHLORIDE [Concomitant]
     Dosage: 10 MMOL, 4X/DAY
     Route: 048
  10. MELATONIN [Concomitant]
     Dosage: 3 MG, 1X/DAY AT BEDTIME
     Route: 048
  11. FLOVENT [Concomitant]
     Dosage: 125 UG X 2 CAPS PUFFS 2X/DAY
  12. MUCOMYST [Concomitant]
     Dosage: 3 ML, 3X/DAY
     Route: 055

REACTIONS (1)
  - Erection increased [Recovered/Resolved]
